FAERS Safety Report 10085881 (Version 1)
Quarter: 2014Q2

REPORT INFORMATION
  Report Type: Spontaneous
  Country: US (occurrence: US)
  Receive Date: 20140418
  Receipt Date: 20140418
  Transmission Date: 20141212
  Serious: No
  Sender: FDA-Public Use
  Company Number: US-PFIZER INC-2014109406

PATIENT
  Age: 61 Year
  Sex: Male
  Weight: 72.6 kg

DRUGS (1)
  1. CHANTIX [Suspect]
     Indication: SMOKING CESSATION THERAPY
     Dosage: UNK
     Dates: start: 2014

REACTIONS (4)
  - Dyspnoea [Unknown]
  - Disease progression [Unknown]
  - Abnormal dreams [Unknown]
  - Insomnia [Unknown]
